FAERS Safety Report 8570218-5 (Version None)
Quarter: 2012Q3

REPORT INFORMATION
  Report Type: 
  Country: None (occurrence: None)
  Receive Date: 20120803
  Receipt Date: 20120730
  Transmission Date: 20120928
  Serious: Yes (Other)
  Sender: FDA-Public Use
  Company Number: JP-PFIZER INC-2012179358

PATIENT
  Age: 46 Year
  Sex: Female

DRUGS (3)
  1. JULINA [Concomitant]
  2. VALTREX [Concomitant]
  3. PROVERA [Suspect]
     Dosage: 2.5 MG, 2X/DAY
     Route: 048
     Dates: start: 20120528

REACTIONS (1)
  - CUSHING'S SYNDROME [None]
